FAERS Safety Report 6461979-X (Version None)
Quarter: 2009Q4

REPORT INFORMATION
  Report Type: 
  Country: None (occurrence: None)
  Receive Date: 20091123
  Receipt Date: 20091109
  Transmission Date: 20100525
  Serious: Yes (Hospitalization)
  Sender: FDA-Public Use
  Company Number: 2009AC000399

PATIENT
  Age: 61 Year
  Sex: Female

DRUGS (8)
  1. DIGOXIN [Suspect]
     Dosage: 0.125 MG;QD;PO
     Route: 048
     Dates: start: 20080414
  2. DIGOXIN [Suspect]
     Dosage: 125 MCG;PO
     Route: 048
     Dates: start: 20040301
  3. TOPROL-XL [Concomitant]
  4. LEXAPRO [Concomitant]
  5. XANAX [Concomitant]
  6. MULTI-VITAMIN [Concomitant]
  7. FOLATE ACID [Concomitant]
  8. CALCIUM [Concomitant]

REACTIONS (16)
  - ANXIETY [None]
  - CHOLECYSTITIS [None]
  - CHOLELITHIASIS [None]
  - COLONIC POLYP [None]
  - DIVERTICULUM [None]
  - DUODENITIS [None]
  - ECCHYMOSIS [None]
  - ERYTHEMA [None]
  - GASTRITIS EROSIVE [None]
  - GASTROOESOPHAGEAL REFLUX DISEASE [None]
  - HYPOAESTHESIA [None]
  - INJURY [None]
  - OESOPHAGEAL STENOSIS [None]
  - OESOPHAGEAL ULCER [None]
  - PERIPHERAL COLDNESS [None]
  - SUPRAVENTRICULAR TACHYCARDIA [None]
